FAERS Safety Report 23171364 (Version 2)
Quarter: 2023Q4

REPORT INFORMATION
  Report Type: Report from Study
  Country: US (occurrence: US)
  Receive Date: 20231110
  Receipt Date: 20231117
  Transmission Date: 20240110
  Serious: Yes (Hospitalization)
  Sender: FDA-Public Use
  Company Number: US-ABBVIE-5486600

PATIENT
  Sex: Female

DRUGS (1)
  1. SKYRIZI [Suspect]
     Active Substance: RISANKIZUMAB-RZAA
     Indication: Crohn^s disease
     Route: 042
     Dates: start: 20231003

REACTIONS (7)
  - Intestinal obstruction [Recovering/Resolving]
  - Dermatitis acneiform [Not Recovered/Not Resolved]
  - Crohn^s disease [Recovering/Resolving]
  - Erythema [Unknown]
  - Rash papular [Unknown]
  - Wound secretion [Unknown]
  - Rash pruritic [Not Recovered/Not Resolved]

NARRATIVE: CASE EVENT DATE: 20230101
